FAERS Safety Report 4791549-0 (Version None)
Quarter: 2005Q4

REPORT INFORMATION
  Report Type: 
  Country: None (occurrence: None)
  Receive Date: 20051007
  Receipt Date: 20050224
  Transmission Date: 20060501
  Serious: No
  Sender: FDA-Public Use
  Company Number: US-BRISTOL-MYERS SQUIBB COMPANY-12875381

PATIENT
  Age: 53 Year
  Sex: Female
  Weight: 97 kg

DRUGS (4)
  1. AVAPRO [Suspect]
     Dates: start: 20041201
  2. PLAVIX [Concomitant]
  3. ECOTRIN [Concomitant]
  4. TOPROL-XL [Concomitant]

REACTIONS (1)
  - VISION BLURRED [None]
